FAERS Safety Report 11204389 (Version 1)
Quarter: 2015Q2

REPORT INFORMATION
  Report Type: Spontaneous
  Country: GB (occurrence: GB)
  Receive Date: 20150621
  Receipt Date: 20150621
  Transmission Date: 20150821
  Serious: Yes (Death)
  Sender: FDA-Public Use
  Company Number: GB-009507513-1506GBR008267

PATIENT
  Age: 25 Year
  Sex: Male
  Weight: 117 kg

DRUGS (8)
  1. NORDAZEPAM [Suspect]
     Active Substance: NORDAZEPAM
  2. MIRTAZAPINE. [Suspect]
     Active Substance: MIRTAZAPINE
     Dosage: UNK
  3. OXAZEPAM. [Suspect]
     Active Substance: OXAZEPAM
  4. ALCOHOL. [Suspect]
     Active Substance: ALCOHOL
  5. ZOMORPH [Suspect]
     Active Substance: MORPHINE SULFATE
  6. AMPHETAMINE [Suspect]
     Active Substance: AMPHETAMINE
  7. DIAZEPAM. [Suspect]
     Active Substance: DIAZEPAM
     Dosage: UNK
  8. MK-9384 [Suspect]
     Active Substance: TRAMADOL HYDROCHLORIDE
     Dosage: UNK

REACTIONS (1)
  - Toxicity to various agents [Fatal]
